FAERS Safety Report 22534177 (Version 1)
Quarter: 2023Q2

REPORT INFORMATION
  Report Type: Spontaneous
  Country: US (occurrence: US)
  Receive Date: 20230608
  Receipt Date: 20230608
  Transmission Date: 20230722
  Serious: Yes (Death, Other)
  Sender: FDA-Public Use
  Company Number: US-BIOVITRUM-2023-US-011717

PATIENT
  Sex: Male

DRUGS (1)
  1. GAMIFANT [Suspect]
     Active Substance: EMAPALUMAB-LZSG
     Indication: Product used for unknown indication
     Dates: start: 20230601, end: 20230601

REACTIONS (1)
  - Death [Fatal]

NARRATIVE: CASE EVENT DATE: 20230606
